FAERS Safety Report 17214169 (Version 2)
Quarter: 2020Q1

REPORT INFORMATION
  Report Type: Spontaneous
  Country: US (occurrence: US)
  Receive Date: 20191230
  Receipt Date: 20200109
  Transmission Date: 20200409
  Serious: No
  Sender: FDA-Public Use
  Company Number: US-PFIZER INC-2019558334

PATIENT
  Age: 70 Year
  Sex: Female
  Weight: 90 kg

DRUGS (1)
  1. CIPROFLOXACIN. [Suspect]
     Active Substance: CIPROFLOXACIN
     Indication: URINARY TRACT INFECTION
     Dosage: UNK

REACTIONS (3)
  - Expired product administered [Unknown]
  - Infection [Unknown]
  - Urinary tract infection [Recovered/Resolved]
